FAERS Safety Report 22073276 (Version 1)
Quarter: 2023Q1

REPORT INFORMATION
  Report Type: Spontaneous
  Country: RU (occurrence: None)
  Receive Date: 20230308
  Receipt Date: 20230308
  Transmission Date: 20230417
  Serious: Yes (Other)
  Sender: FDA-Public Use
  Company Number: RU-ROCHE-3297963

PATIENT
  Age: 37 Year
  Sex: Male

DRUGS (5)
  1. OBINUTUZUMAB [Suspect]
     Active Substance: OBINUTUZUMAB
     Indication: Follicular lymphoma
     Dosage: 8 CYCLES.
     Route: 042
     Dates: start: 201312, end: 201406
  2. CYCLOPHOSPHAMIDE [Suspect]
     Active Substance: CYCLOPHOSPHAMIDE
     Indication: Follicular lymphoma
     Dosage: 8 CYCLES
     Route: 065
     Dates: start: 201312, end: 201406
  3. DOXORUBICIN [Suspect]
     Active Substance: DOXORUBICIN
     Indication: Follicular lymphoma
     Dosage: 8 CYCLES
     Route: 065
     Dates: start: 201312, end: 201406
  4. VINCRISTINE SULFATE [Suspect]
     Active Substance: VINCRISTINE SULFATE
     Indication: Follicular lymphoma
     Route: 065
     Dates: start: 201312, end: 201406
  5. PREDNISONE [Suspect]
     Active Substance: PREDNISONE
     Indication: Follicular lymphoma
     Dosage: 8 CYCLES.
     Route: 065
     Dates: start: 201312, end: 201406

REACTIONS (1)
  - Colonic fistula [Unknown]

NARRATIVE: CASE EVENT DATE: 20141201
